FAERS Safety Report 23947584 (Version 2)
Quarter: 2024Q2

REPORT INFORMATION
  Report Type: Spontaneous
  Country: PH (occurrence: PH)
  Receive Date: 20240606
  Receipt Date: 20240625
  Transmission Date: 20240715
  Serious: Yes (Hospitalization, Other)
  Sender: FDA-Public Use
  Company Number: PH-TEVA-VS-3205636

PATIENT
  Age: 36 Year
  Sex: Male

DRUGS (2)
  1. TESTOSTERONE [Suspect]
     Active Substance: TESTOSTERONE
     Indication: Hypogonadism
     Route: 065
  2. PREDNISONE [Suspect]
     Active Substance: PREDNISONE
     Indication: Rheumatoid arthritis
     Dosage: LOW-DOSE
     Route: 065

REACTIONS (3)
  - Hypoglycaemia unawareness [Recovered/Resolved]
  - Unmasking of previously unidentified disease [Recovered/Resolved]
  - Insulinoma [Recovered/Resolved]
